FAERS Safety Report 16209829 (Version 1)
Quarter: 2019Q2

REPORT INFORMATION
  Report Type: Spontaneous
  Country: ES (occurrence: ES)
  Receive Date: 20190417
  Receipt Date: 20190417
  Transmission Date: 20190711
  Serious: Yes (Hospitalization, Other)
  Sender: FDA-Public Use
  Company Number: ES-SEATTLE GENETICS-2019SGN01062

PATIENT
  Age: 28 Year
  Sex: Male

DRUGS (2)
  1. BENDAMUSTINE HYDROCHLORIDE. [Suspect]
     Active Substance: BENDAMUSTINE HYDROCHLORIDE
     Indication: NON-HODGKIN^S LYMPHOMA
     Dosage: UNK
     Route: 065
     Dates: start: 20180226
  2. ADCETRIS [Suspect]
     Active Substance: BRENTUXIMAB VEDOTIN
     Indication: NON-HODGKIN^S LYMPHOMA
     Dosage: UNK
     Route: 065
     Dates: start: 20180226

REACTIONS (7)
  - Angioedema [Recovered/Resolved]
  - Pyrexia [Recovered/Resolved]
  - Temperature regulation disorder [Recovered/Resolved]
  - Rash [Unknown]
  - Pruritus [Recovered/Resolved]
  - Rash maculo-papular [Recovered/Resolved]
  - Dyspnoea [Recovered/Resolved]
